FAERS Safety Report 10947001 (Version 2)
Quarter: 2015Q1

REPORT INFORMATION
  Report Type: Spontaneous
  Country: US (occurrence: US)
  Receive Date: 20150323
  Receipt Date: 20150331
  Transmission Date: 20150721
  Serious: Yes (Hospitalization)
  Sender: FDA-Public Use
  Company Number: US-UCBSA-2015008840

PATIENT
  Age: 57 Year
  Sex: Female
  Weight: 81.6 kg

DRUGS (2)
  1. CIMZIA [Suspect]
     Active Substance: CERTOLIZUMAB PEGOL
     Indication: RHEUMATOID ARTHRITIS
     Dosage: 200 MG, EV 2 WEEKS(QOW)
     Route: 058
     Dates: start: 201410
  2. MORPHINE [Concomitant]
     Active Substance: MORPHINE
     Indication: SPINAL CORD INJURY
     Dosage: UNK

REACTIONS (5)
  - Vomiting [Recovered/Resolved]
  - Diverticulitis [Recovering/Resolving]
  - Colitis [Recovering/Resolving]
  - Nausea [Recovered/Resolved]
  - Pyrexia [Recovered/Resolved]

NARRATIVE: CASE EVENT DATE: 20150302
